FAERS Safety Report 7238606-7 (Version None)
Quarter: 2011Q1

REPORT INFORMATION
  Report Type: 
  Country: None (occurrence: None)
  Receive Date: 20110121
  Receipt Date: 20110112
  Transmission Date: 20110831
  Serious: No
  Sender: FDA-Public Use
  Company Number: US-JNJFOC-20110103641

PATIENT
  Age: 48 Year
  Sex: Female
  Weight: 74.84 kg

DRUGS (4)
  1. INVEGA [Suspect]
     Route: 048
  2. TRILEPTAL [Concomitant]
     Indication: POST-TRAUMATIC STRESS DISORDER
     Route: 048
  3. INVEGA [Suspect]
     Indication: POST-TRAUMATIC STRESS DISORDER
     Route: 048
  4. INVEGA [Suspect]
     Route: 048

REACTIONS (6)
  - OFF LABEL USE [None]
  - MYALGIA [None]
  - SOMNOLENCE [None]
  - MEMORY IMPAIRMENT [None]
  - PAIN [None]
  - ARTHRALGIA [None]
